FAERS Safety Report 6926338-1 (Version None)
Quarter: 2010Q3

REPORT INFORMATION
  Report Type: 
  Country: None (occurrence: None)
  Receive Date: 20100816
  Receipt Date: 20100816
  Transmission Date: 20110219
  Serious: Yes (Other)
  Sender: FDA-Public Use
  Company Number: None

PATIENT
  Age: 78 Year
  Sex: Male
  Weight: 79.3795 kg

DRUGS (2)
  1. MULTAQ [Suspect]
     Indication: HEART RATE IRREGULAR
     Dosage: ABOUT 2 TO 3 WEEKS
  2. MULTAQ [Suspect]
     Indication: TACHYCARDIA
     Dosage: ABOUT 2 TO 3 WEEKS

REACTIONS (3)
  - CONDITION AGGRAVATED [None]
  - DRUG INEFFECTIVE [None]
  - HEART RATE IRREGULAR [None]
